FAERS Safety Report 9342491 (Version 1)
Quarter: 2013Q2

REPORT INFORMATION
  Report Type: Spontaneous
  Country: US (occurrence: None)
  Receive Date: 20130528
  Receipt Date: 20130528
  Transmission Date: 20140414
  Serious: Yes (Hospitalization)
  Sender: FDA-Public Use
  Company Number: 2013P1002109

PATIENT
  Age: 70 Year
  Sex: Male
  Weight: 117.94 kg

DRUGS (6)
  1. PREDNISONE [Suspect]
     Indication: CHEST PAIN
     Route: 048
     Dates: start: 20130118, end: 20130118
  2. PREDNISONE [Suspect]
     Route: 048
     Dates: start: 20130118, end: 20130118
  3. MELOXICAM [Suspect]
     Indication: MYALGIA
     Dates: start: 20130122
  4. NEXIUM [Suspect]
     Indication: GASTROOESOPHAGEAL REFLUX DISEASE
     Dates: start: 201301
  5. NEXIUM [Suspect]
     Indication: OESOPHAGEAL PAIN
     Dates: start: 201301
  6. ATENOLOL [Concomitant]

REACTIONS (18)
  - Myalgia [None]
  - Gastrooesophageal reflux disease [None]
  - Oesophageal pain [None]
  - Abdominal distension [None]
  - Psychomotor hyperactivity [None]
  - Hyperhidrosis [None]
  - Blood pressure increased [None]
  - Abdominal discomfort [None]
  - Weight decreased [None]
  - Pain [None]
  - Arthralgia [None]
  - Chest pain [None]
  - Cough [None]
  - Chest discomfort [None]
  - Dyspnoea [None]
  - Refusal of treatment by patient [None]
  - Cardiac disorder [None]
  - Overdose [None]
